FAERS Safety Report 11745441 (Version 1)
Quarter: 2015Q4

REPORT INFORMATION
  Report Type: Spontaneous
  Country: US (occurrence: US)
  Receive Date: 20151117
  Receipt Date: 20151117
  Transmission Date: 20160304
  Serious: No
  Sender: FDA-Public Use
  Company Number: US-ASTRAZENECA-2015SF06746

PATIENT
  Age: 679 Month
  Sex: Female
  Weight: 79.4 kg

DRUGS (1)
  1. CRESTOR [Suspect]
     Active Substance: ROSUVASTATIN CALCIUM
     Indication: BLOOD CHOLESTEROL INCREASED
     Route: 048
     Dates: start: 201501

REACTIONS (2)
  - Neuropathy peripheral [Unknown]
  - Sciatica [Unknown]

NARRATIVE: CASE EVENT DATE: 201507
